FAERS Safety Report 7800883-9 (Version None)
Quarter: 2011Q4

REPORT INFORMATION
  Report Type: 
  Country: None (occurrence: None)
  Receive Date: 20111006
  Receipt Date: 20110928
  Transmission Date: 20120403
  Serious: Yes (Other)
  Sender: FDA-Public Use
  Company Number: US-MERCK-1109USA03399

PATIENT
  Age: 85 Year
  Sex: Female

DRUGS (6)
  1. SIMVASTATIN [Concomitant]
     Route: 048
  2. AMLODIPINE [Concomitant]
     Route: 065
  3. ISOSORBIDE [Concomitant]
     Route: 065
  4. HYDROCHLOROTHIAZIDE [Concomitant]
     Route: 048
  5. FOSAMAX PLUS D [Suspect]
     Indication: OSTEOPOROSIS
     Route: 048
     Dates: start: 20000601, end: 20080601
  6. METOPROLOL [Concomitant]
     Route: 065

REACTIONS (1)
  - OSTEONECROSIS [None]
